FAERS Safety Report 18440735 (Version 1)
Quarter: 2020Q4

REPORT INFORMATION
  Report Type: Spontaneous
  Country: US (occurrence: US)
  Receive Date: 20201029
  Receipt Date: 20201029
  Transmission Date: 20210114
  Serious: Yes (Other)
  Sender: FDA-Public Use
  Company Number: None

PATIENT
  Age: 30 Year
  Sex: Male
  Weight: 90 kg

DRUGS (4)
  1. PAROEX [Suspect]
     Active Substance: CHLORHEXIDINE GLUCONATE
     Indication: GINGIVITIS
     Dosage: ?          QUANTITY:15 ML;?
     Route: 048
  2. FISH OIL [Concomitant]
     Active Substance: FISH OIL
  3. PROBIOTICS [Concomitant]
     Active Substance: PROBIOTICS NOS
  4. PAROEX [Suspect]
     Active Substance: CHLORHEXIDINE GLUCONATE
     Indication: GINGIVAL SWELLING
     Dosage: ?          QUANTITY:15 ML;?
     Route: 048

REACTIONS (6)
  - Tongue discolouration [None]
  - Burkholderia infection [None]
  - Product contamination microbial [None]
  - Recalled product administered [None]
  - Hypertrophy of tongue papillae [None]
  - Taste disorder [None]

NARRATIVE: CASE EVENT DATE: 20191031
